FAERS Safety Report 17264419 (Version 2)
Quarter: 2020Q1

REPORT INFORMATION
  Report Type: Report from Study
  Country: US (occurrence: US)
  Receive Date: 20200113
  Receipt Date: 20200121
  Transmission Date: 20200409
  Serious: Yes (Other)
  Sender: FDA-Public Use
  Company Number: US-BAYER-2019-234550

PATIENT
  Age: 43 Year
  Sex: Male

DRUGS (2)
  1. BETASERON [Suspect]
     Active Substance: INTERFERON BETA-1B
     Indication: MULTIPLE SCLEROSIS
     Dosage: 0.3 MG, QOD
     Route: 058
     Dates: start: 201912
  2. BETASERON [Suspect]
     Active Substance: INTERFERON BETA-1B
     Indication: MULTIPLE SCLEROSIS
     Dosage: 1 ML, QOD
     Route: 058
     Dates: start: 2013

REACTIONS (6)
  - Multiple sclerosis relapse [None]
  - Loss of consciousness [None]
  - Hypoaesthesia [None]
  - Seizure [Not Recovered/Not Resolved]
  - Muscle spasms [None]
  - Nerve injury [None]

NARRATIVE: CASE EVENT DATE: 201911
